FAERS Safety Report 8992180 (Version 2)
Quarter: 2013Q3

REPORT INFORMATION
  Report Type: Report from Study
  Country: DE (occurrence: DE)
  Receive Date: 20121231
  Receipt Date: 20130925
  Transmission Date: 20140515
  Serious: Yes (Other)
  Sender: FDA-Public Use
  Company Number: DE-AMGEN-DEUCT2012080636

PATIENT
  Age: 54 Year
  Sex: Female
  Weight: 71 kg

DRUGS (5)
  1. ETANERCEPT [Suspect]
     Indication: RHEUMATOID ARTHRITIS
     Dosage: 50 MG, QWK
     Route: 058
     Dates: start: 20121019, end: 201211
  2. HUMIRA [Concomitant]
     Indication: RHEUMATOID ARTHRITIS
     Dosage: 40 MG, UNK
     Route: 058
     Dates: start: 20121206
  3. MTX                                /00113802/ [Concomitant]
     Indication: RHEUMATOID ARTHRITIS
     Dosage: 15 MG, UNK
     Route: 048
     Dates: start: 20080123
  4. FOLINIC ACID [Concomitant]
     Indication: VITAMIN SUPPLEMENTATION
     Dosage: 5 MG, UNK
     Dates: start: 20080123
  5. DEKRISTOL [Concomitant]
     Indication: OSTEOPENIA
     Dosage: 20500 UNK, UNK
     Dates: start: 20111006

REACTIONS (1)
  - Hypersensitivity [Recovered/Resolved]
